FAERS Safety Report 15145079 (Version 2)
Quarter: 2018Q3

REPORT INFORMATION
  Report Type: Report from Study
  Country: US (occurrence: US)
  Receive Date: 20180713
  Receipt Date: 20180725
  Transmission Date: 20181010
  Serious: Yes (Hospitalization)
  Sender: FDA-Public Use
  Company Number: US-ACTELION-A-NJ2018-168466

PATIENT
  Age: 79 Year
  Sex: Female
  Weight: 73.47 kg

DRUGS (1)
  1. OPSUMIT [Suspect]
     Active Substance: MACITENTAN
     Indication: PULMONARY ARTERIAL HYPERTENSION
     Dosage: 10 MG, QD
     Route: 048
     Dates: start: 201802

REACTIONS (7)
  - Oedema peripheral [Unknown]
  - Dyspnoea [Unknown]
  - Blood creatinine increased [Unknown]
  - Sinusitis [Unknown]
  - Therapy non-responder [Unknown]
  - Heart rate decreased [Unknown]
  - Cardiac failure congestive [Unknown]
